FAERS Safety Report 4883596-5 (Version None)
Quarter: 2006Q1

REPORT INFORMATION
  Report Type: 
  Country: None (occurrence: None)
  Receive Date: 20060118
  Receipt Date: 20060106
  Transmission Date: 20060701
  Serious: Yes (Other)
  Sender: FDA-Public Use
  Company Number: PHBS2006ES00756

PATIENT
  Age: 55 Year
  Sex: Male

DRUGS (2)
  1. IMATINIB [Suspect]
     Indication: CHRONIC MYELOID LEUKAEMIA
     Dosage: 400 MG/DAY
     Route: 065
  2. IMATINIB [Suspect]
     Dosage: 300 MG/DAY
     Route: 065

REACTIONS (5)
  - ANAEMIA [None]
  - CHROMOSOME ANALYSIS ABNORMAL [None]
  - ERYTHROPOIESIS ABNORMAL [None]
  - MYELODYSPLASTIC SYNDROME [None]
  - NEUTROPENIA [None]
